FAERS Safety Report 8207777-8 (Version None)
Quarter: 2012Q1

REPORT INFORMATION
  Report Type: 
  Country: None (occurrence: None)
  Receive Date: 20120313
  Receipt Date: 20120313
  Transmission Date: 20120608
  Serious: No
  Sender: FDA-Public Use
  Company Number: None

PATIENT
  Sex: Female

DRUGS (1)
  1. XENAZINE [Suspect]
     Indication: CARDIOVASCULAR DISORDER
     Dosage: XENAZINE 25MG TAKE 1 + 1/2 TABLETS BY MOUTH TWICE A DAY
     Route: 048
     Dates: start: 20090423

REACTIONS (1)
  - OEDEMA PERIPHERAL [None]
